FAERS Safety Report 8401897-0 (Version None)
Quarter: 2012Q2

REPORT INFORMATION
  Report Type: 
  Country: None (occurrence: None)
  Receive Date: 20120601
  Receipt Date: 20120208
  Transmission Date: 20120825
  Serious: No
  Sender: FDA-Public Use
  Company Number: US-ABBOTT-12P-163-0902491-00

PATIENT
  Sex: Female
  Weight: 56.75 kg

DRUGS (4)
  1. MARINOL [Suspect]
     Indication: RESTLESS LEGS SYNDROME
  2. MARITEX [Concomitant]
     Indication: RESTLESS LEGS SYNDROME
  3. HLORELLA SEED [Concomitant]
     Indication: PRODUCT USED FOR UNKNOWN INDICATION
  4. M.V.I. [Concomitant]
     Indication: PRODUCT USED FOR UNKNOWN INDICATION

REACTIONS (1)
  - DRUG SCREEN NEGATIVE [None]
